FAERS Safety Report 7098069-1 (Version None)
Quarter: 2010Q4

REPORT INFORMATION
  Report Type: 
  Country: None (occurrence: None)
  Receive Date: 20101112
  Receipt Date: 20100224
  Transmission Date: 20110411
  Serious: No
  Sender: FDA-Public Use
  Company Number: US-KINGPHARMUSA00001-K201000234

PATIENT

DRUGS (1)
  1. NEOSPORIN [Suspect]
     Dosage: UNK, SINGLE
     Route: 030
     Dates: start: 20100222, end: 20100222

REACTIONS (1)
  - INCORRECT ROUTE OF DRUG ADMINISTRATION [None]
